APPROVED DRUG PRODUCT: LAMISIL AT
Active Ingredient: TERBINAFINE
Strength: 1%
Dosage Form/Route: GEL;TOPICAL
Application: N021958 | Product #001
Applicant: KARO HEALTHCARE INC
Approved: Jul 24, 2006 | RLD: Yes | RS: Yes | Type: OTC